FAERS Safety Report 7575072-6 (Version None)
Quarter: 2011Q2

REPORT INFORMATION
  Report Type: 
  Country: None (occurrence: None)
  Receive Date: 20110627
  Receipt Date: 20110610
  Transmission Date: 20111010
  Serious: Yes (Hospitalization, Other)
  Sender: FDA-Public Use
  Company Number: US-BAYER-201026387NA

PATIENT
  Age: 24 Year
  Sex: Female
  Weight: 49.887 kg

DRUGS (8)
  1. YASMIN [Suspect]
     Indication: ACNE
  2. YASMIN [Suspect]
     Indication: MENSTRUATION IRREGULAR
  3. YASMIN [Suspect]
     Indication: ORAL CONTRACEPTION
     Dosage: UNK
     Route: 048
     Dates: start: 20020101, end: 20080101
  4. DROSPIRENONE AND ETHINYL ESTRADIOL [Suspect]
     Indication: ACNE
  5. DROSPIRENONE AND ETHINYL ESTRADIOL [Suspect]
     Indication: MENSTRUATION IRREGULAR
  6. CEFTRIAXONE [Concomitant]
     Indication: LYME DISEASE
     Dosage: UNK
     Route: 048
     Dates: start: 20080101, end: 20100101
  7. MICRONOR [Concomitant]
  8. DROSPIRENONE AND ETHINYL ESTRADIOL [Suspect]
     Indication: ORAL CONTRACEPTION
     Dosage: UNK
     Route: 048
     Dates: start: 20080101, end: 20100101

REACTIONS (4)
  - CHEST PAIN [None]
  - ABDOMINAL PAIN UPPER [None]
  - PULMONARY EMBOLISM [None]
  - GALLBLADDER DISORDER [None]
